FAERS Safety Report 23789611 (Version 1)
Quarter: 2024Q2

REPORT INFORMATION
  Report Type: Spontaneous
  Country: US (occurrence: US)
  Receive Date: 20240426
  Receipt Date: 20240426
  Transmission Date: 20240716
  Serious: No
  Sender: FDA-Public Use
  Company Number: US-SEATTLE GENETICS-2023SGN10745

PATIENT
  Sex: Female

DRUGS (2)
  1. TUKYSA [Suspect]
     Active Substance: TUCATINIB
     Indication: Product used for unknown indication
     Dosage: UNK
     Route: 065
     Dates: start: 202005
  2. TUKYSA [Suspect]
     Active Substance: TUCATINIB
     Dosage: UNK
     Route: 065
     Dates: start: 20230315

REACTIONS (5)
  - Memory impairment [Unknown]
  - Craniotomy [Unknown]
  - Brain operation [Unknown]
  - Craniotomy [Unknown]
  - Gamma radiation therapy [Unknown]

NARRATIVE: CASE EVENT DATE: 20211102
